FAERS Safety Report 6317290-0 (Version None)
Quarter: 2009Q3

REPORT INFORMATION
  Report Type: 
  Country: None (occurrence: None)
  Receive Date: 20090821
  Receipt Date: 20090814
  Transmission Date: 20100115
  Serious: Yes (Hospitalization)
  Sender: FDA-Public Use
  Company Number: FR-BIOGENIDEC-2008BI018855

PATIENT
  Age: 47 Year
  Sex: Female
  Weight: 67 kg

DRUGS (10)
  1. TYSABRI [Suspect]
     Indication: MULTIPLE SCLEROSIS
     Route: 042
     Dates: start: 20070920
  2. LAMOTRIGINE [Concomitant]
     Indication: EPILEPSY
     Dates: start: 20050101
  3. PREGABALINE [Concomitant]
     Indication: NEURALGIA
     Dates: start: 20070301
  4. AMITRIPTYLINE HCL [Concomitant]
     Indication: ANALGESIC THERAPY
     Dates: start: 20070901
  5. CLONAZEPAM [Concomitant]
     Dates: start: 20050101
  6. AMANTADINE HCL [Concomitant]
     Indication: FATIGUE
     Dates: start: 20050701, end: 20080604
  7. TRAMADOL [Concomitant]
     Indication: ANALGESIC THERAPY
     Dates: start: 20080201
  8. BACLOFENE [Concomitant]
     Indication: MUSCLE RELAXANT THERAPY
     Dates: start: 20050701
  9. ACETAMINOPHEN [Concomitant]
     Indication: ANALGESIC THERAPY
     Dates: start: 20041201
  10. MAGNESIUM [Concomitant]
     Indication: FATIGUE
     Dates: start: 20080301

REACTIONS (1)
  - EPILEPSY [None]
